FAERS Safety Report 5356733-6 (Version None)
Quarter: 2007Q2

REPORT INFORMATION
  Report Type: 
  Country: None (occurrence: None)
  Receive Date: 20070614
  Receipt Date: 20060609
  Transmission Date: 20071010
  Serious: No
  Sender: FDA-Public Use
  Company Number: US-ASTRAZENECA-2006UW12407

PATIENT
  Age: 73 Year
  Sex: Female
  Weight: 68 kg

DRUGS (4)
  1. ATACAND [Suspect]
     Indication: HYPERTENSION
     Route: 048
     Dates: start: 20060601
  2. ASPIRIN [Concomitant]
     Route: 048
  3. ATIVAN [Concomitant]
     Route: 048
  4. TOPROL-XL [Concomitant]
     Route: 048

REACTIONS (2)
  - HEADACHE [None]
  - INSOMNIA [None]
